FAERS Safety Report 16383030 (Version 1)
Quarter: 2019Q2

REPORT INFORMATION
  Report Type: Spontaneous
  Country: US (occurrence: US)
  Receive Date: 20190603
  Receipt Date: 20190603
  Transmission Date: 20190711
  Serious: Yes (Death)
  Sender: FDA-Public Use
  Company Number: US-DSJP-DSU-2019-119289

PATIENT

DRUGS (1)
  1. SAVAYSA [Suspect]
     Active Substance: EDOXABAN TOSYLATE
     Indication: PRODUCT USED FOR UNKNOWN INDICATION
     Dosage: UNK
     Route: 065
     Dates: start: 2015

REACTIONS (2)
  - Death [Fatal]
  - Therapeutic response unexpected [Unknown]
